FAERS Safety Report 5339910-X (Version None)
Quarter: 2007Q2

REPORT INFORMATION
  Report Type: 
  Country: None (occurrence: None)
  Receive Date: 20070529
  Receipt Date: 20070515
  Transmission Date: 20071010
  Serious: Yes (Other)
  Sender: FDA-Public Use
  Company Number: 2007321146

PATIENT
  Sex: Male

DRUGS (2)
  1. MINOXIDIL [Suspect]
     Indication: ALOPECIA
     Dosage: UNSPECIFIED, TOPICAL
     Route: 061
     Dates: start: 20070401
  2. FINASTERIDE [Concomitant]

REACTIONS (3)
  - ALOPECIA [None]
  - CONDITION AGGRAVATED [None]
  - WHITE BLOOD CELL COUNT DECREASED [None]
